FAERS Safety Report 8920747 (Version 1)
Quarter: 2012Q4

REPORT INFORMATION
  Report Type: 
  Country: US (occurrence: US)
  Receive Date: 20121122
  Receipt Date: 20121122
  Transmission Date: 20130627
  Serious: Yes (Other)
  Sender: FDA-Public Use
  Company Number: CHPA2012US023662

PATIENT
  Age: 81 Year
  Sex: Male

DRUGS (1)
  1. MAALOX ANTACID/ANTIGAS MAX LIQ UNKNOWN [Suspect]
     Indication: GASTRIC DISORDER
     Dosage: 3 TSP, PRN
     Route: 048

REACTIONS (2)
  - Laryngeal cancer [Not Recovered/Not Resolved]
  - Off label use [Unknown]
